FAERS Safety Report 6402084-8 (Version None)
Quarter: 2009Q4

REPORT INFORMATION
  Report Type: 
  Country: None (occurrence: None)
  Receive Date: 20091015
  Receipt Date: 20091014
  Transmission Date: 20100525
  Serious: Yes (Other)
  Sender: FDA-Public Use
  Company Number: SE-BRISTOL-MYERS SQUIBB COMPANY-14817308

PATIENT
  Age: 64 Year
  Sex: Female

DRUGS (1)
  1. APROVEL [Suspect]
     Indication: HYPERTENSION
     Dates: end: 20080624

REACTIONS (2)
  - EYE HAEMORRHAGE [None]
  - VENOUS THROMBOSIS LIMB [None]
